FAERS Safety Report 10875016 (Version 3)
Quarter: 2015Q1

REPORT INFORMATION
  Report Type: Report from Study
  Country: JP (occurrence: JP)
  Receive Date: 20150227
  Receipt Date: 20150316
  Transmission Date: 20150721
  Serious: Yes (Hospitalization)
  Sender: FDA-Public Use
  Company Number: JP-EISAI MEDICAL RESEARCH-EC-2015-004354

PATIENT
  Age: 79 Year
  Sex: Male
  Weight: 59 kg

DRUGS (6)
  1. LENVATINIB [Suspect]
     Active Substance: LENVATINIB
     Route: 048
     Dates: start: 20150224, end: 20150228
  2. TRAZENTA [Concomitant]
     Active Substance: LINAGLIPTIN
  3. LENVATINIB [Suspect]
     Active Substance: LENVATINIB
     Indication: HEPATOCELLULAR CARCINOMA
     Route: 048
     Dates: start: 20130904, end: 20140929
  4. GLIMICRON [Concomitant]
     Active Substance: GLICLAZIDE
  5. LENVATINIB [Suspect]
     Active Substance: LENVATINIB
     Route: 048
     Dates: start: 20140930, end: 20150221
  6. URSO [Concomitant]
     Active Substance: URSODIOL

REACTIONS (2)
  - Gastric haemorrhage [Recovered/Resolved]
  - Varices oesophageal [Recovered/Resolved]

NARRATIVE: CASE EVENT DATE: 20150224
